FAERS Safety Report 15518883 (Version 1)
Quarter: 2018Q4

REPORT INFORMATION
  Report Type: Spontaneous
  Country: GB (occurrence: FR)
  Receive Date: 20181017
  Receipt Date: 20181017
  Transmission Date: 20190205
  Serious: Yes (Hospitalization)
  Sender: FDA-Public Use
  Company Number: FR-FRESENIUS KABI-FK201810595

PATIENT
  Age: 56 Year
  Sex: Male
  Weight: 91 kg

DRUGS (19)
  1. LINEZOLID KABI [Suspect]
     Active Substance: LINEZOLID
     Indication: LEGIONELLA INFECTION
     Route: 042
     Dates: start: 20180831
  2. OMEPRAZOLE. [Suspect]
     Active Substance: OMEPRAZOLE
     Indication: PROPHYLAXIS
     Route: 042
     Dates: start: 20180825
  3. NICOTINE. [Suspect]
     Active Substance: NICOTINE
     Indication: EX-TOBACCO USER
     Route: 062
     Dates: start: 20180827
  4. OXAZEPAM. [Suspect]
     Active Substance: OXAZEPAM
     Indication: DELIRIUM TREMENS
     Route: 045
     Dates: start: 20180827
  5. CLONIDINE. [Suspect]
     Active Substance: CLONIDINE
     Indication: SEDATION
     Route: 042
     Dates: start: 20180829
  6. SULFAMETHOXAZOLE/TRIMETHOPRIM [Concomitant]
     Active Substance: SULFAMETHOXAZOLE\TRIMETHOPRIM
  7. SPIRAMYCIN [Suspect]
     Active Substance: SPIRAMYCIN
     Indication: LEGIONELLA INFECTION
     Route: 042
     Dates: start: 20180831, end: 20180908
  8. LACTULOSE. [Concomitant]
     Active Substance: LACTULOSE
  9. TERBUTALINE SULFATE. [Concomitant]
     Active Substance: TERBUTALINE SULFATE
  10. URAPIDIL [Suspect]
     Active Substance: URAPIDIL
     Indication: PRODUCT USED FOR UNKNOWN INDICATION
     Route: 042
     Dates: start: 20180831
  11. CLORAZEPATE DIPOTASSIUM. [Suspect]
     Active Substance: CLORAZEPATE DIPOTASSIUM
     Indication: PRODUCT USED FOR UNKNOWN INDICATION
     Route: 045
     Dates: start: 20180829
  12. SUFENTANIL [Suspect]
     Active Substance: SUFENTANIL
     Indication: SEDATION
     Route: 042
     Dates: start: 20180827, end: 20180908
  13. IPRATROPIUM BROMIDE. [Concomitant]
     Active Substance: IPRATROPIUM BROMIDE
  14. INSULIN HUMAN ZINC SUSPENSION [Concomitant]
     Active Substance: INSULIN HUMAN
  15. LEVOFLOXACIN IN 5% DEXTROSE INJECTION [Suspect]
     Active Substance: LEVOFLOXACIN
     Indication: LEGIONELLA INFECTION
     Route: 042
     Dates: start: 20180825
  16. HALOPERIDOL. [Suspect]
     Active Substance: HALOPERIDOL
     Indication: AGITATION
     Route: 042
     Dates: start: 20180829, end: 20180908
  17. HEPARIN SODIUM. [Suspect]
     Active Substance: HEPARIN SODIUM
     Indication: PROPHYLAXIS
     Route: 042
     Dates: start: 20180827
  18. PROPOFOL (MANUFACTURER UNKNOWN) [Suspect]
     Active Substance: PROPOFOL
     Indication: SEDATION
     Route: 042
     Dates: start: 20180825
  19. GLYCINE/ALANINE/SERINE/ASPARTIC ACID/LYSINE/TYROSINE/LEUCINE/METHIONINE/PHENYLALANINE/HISTIDINE/VALI [Concomitant]

REACTIONS (1)
  - Rash morbilliform [Not Recovered/Not Resolved]

NARRATIVE: CASE EVENT DATE: 20180904
